FAERS Safety Report 4977799-9 (Version None)
Quarter: 2006Q1

REPORT INFORMATION
  Report Type: 
  Country: None (occurrence: None)
  Receive Date: 20060215
  Receipt Date: 20050331
  Transmission Date: 20060701
  Serious: Yes (Other)
  Sender: FDA-Public Use
  Company Number: MC200500311

PATIENT
  Sex: Male

DRUGS (2)
  1. ANGIOMAX [Suspect]
  2. INTEGRILIN [Suspect]

REACTIONS (1)
  - RETROPERITONEAL HAEMORRHAGE [None]
